FAERS Safety Report 9587030 (Version 1)
Quarter: 2013Q4

REPORT INFORMATION
  Report Type: Spontaneous
  Country: US (occurrence: US)
  Receive Date: 20131003
  Receipt Date: 20131003
  Transmission Date: 20140711
  Serious: No
  Sender: FDA-Public Use
  Company Number: US-B.I. PHARMACEUTICALS,INC./RIDGEFIELD-2013-BI-30262BP

PATIENT
  Sex: 0

DRUGS (1)
  1. COMBIVENT [Suspect]
     Dosage: POTENCY: 120UG, 20 UG

REACTIONS (4)
  - Palpitations [Unknown]
  - Dyspnoea [Unknown]
  - Headache [Unknown]
  - Chest discomfort [Unknown]
